FAERS Safety Report 4639481-7 (Version None)
Quarter: 2005Q2

REPORT INFORMATION
  Report Type: 
  Country: None (occurrence: None)
  Receive Date: 20050419
  Receipt Date: 20050404
  Transmission Date: 20051028
  Serious: Yes (Life-Threatening)
  Sender: FDA-Public Use
  Company Number: PHEH2005US02084

PATIENT
  Age: 77 Year
  Sex: Female
  Weight: 70.7611 kg

DRUGS (11)
  1. VISUDYNE [Suspect]
     Indication: CHOROIDAL NEOVASCULARISATION
     Dosage: 4.5 ML DAILY IV
     Route: 042
     Dates: start: 20050211, end: 20050211
  2. VISUDYNE [Suspect]
     Indication: MACULAR DEGENERATION
     Dosage: 4.5 ML DAILY IV
     Route: 042
     Dates: start: 20050211, end: 20050211
  3. VANCERIL [Concomitant]
  4. IPRATROPIUM BROMIDE WITH SALBUTAMOL [Concomitant]
  5. MULTI-VITAMINS [Concomitant]
  6. CRESTOR [Concomitant]
  7. HYZAAR [Concomitant]
  8. FOSAMAX [Concomitant]
  9. LUTEIN [Concomitant]
  10. OCUVITE [Concomitant]
  11. ALBUTEROL [Concomitant]

REACTIONS (2)
  - DRUG HYPERSENSITIVITY [None]
  - RESPIRATORY DISTRESS [None]
